FAERS Safety Report 9012257 (Version 1)
Quarter: 2013Q1

REPORT INFORMATION
  Report Type: Spontaneous
  Country: FR (occurrence: None)
  Receive Date: 20121231
  Receipt Date: 20130131
  Transmission Date: 20140127
  Serious: Yes (Hospitalization)
  Sender: FDA-Public Use
  Company Number: 219945

PATIENT
  Age: 81 Year
  Sex: Male
  Weight: 101 kg

DRUGS (9)
  1. INNOHEP (TINZAPARIN SODIUM) [Suspect]
     Indication: PRODUCT USED FOR UNKNOWN INDICATION
     Dates: start: 201201
  2. METOPROLOL (METOPROLOL) [Concomitant]
  3. TRIATEC (RAMIPRIL) [Concomitant]
  4. OROCAL D3 (LEKOVIT CA) [Concomitant]
  5. CORTANCYL (PREDNISONE) [Concomitant]
  6. XATRAL (ALFUZOSIN) [Concomitant]
  7. XYZALL (LEVOCETIRIZINE) [Concomitant]
  8. SEROPLEX 20 (ESCITALOPRAM OXALATE) [Concomitant]
  9. MOPRAL (OMEPRAZOLE) [Concomitant]

REACTIONS (7)
  - Abdominal pain [None]
  - Flatulence [None]
  - Muscle haemorrhage [None]
  - Heart rate irregular [None]
  - Anaemia [None]
  - Renal failure [None]
  - Atrial fibrillation [None]
